FAERS Safety Report 7656886-0 (Version None)
Quarter: 2011Q3

REPORT INFORMATION
  Report Type: 
  Country: None (occurrence: None)
  Receive Date: 20110804
  Receipt Date: 20110801
  Transmission Date: 20111222
  Serious: Yes (Hospitalization, Other)
  Sender: FDA-Public Use
  Company Number: FR-PFIZER INC-2011174159

PATIENT
  Age: 83 Year
  Sex: Female

DRUGS (28)
  1. MABTHERA [Suspect]
     Indication: B-CELL LYMPHOMA
     Dosage: UNK
     Route: 042
     Dates: start: 20110510, end: 20110510
  2. MABTHERA [Suspect]
     Dosage: UNK
     Route: 042
     Dates: start: 20110530, end: 20110530
  3. VEPESID [Suspect]
     Indication: B-CELL LYMPHOMA
     Dosage: UNK
     Route: 042
     Dates: start: 20110510, end: 20110510
  4. POLARAMINE [Suspect]
     Indication: PREMEDICATION
     Dosage: UNK
     Route: 042
     Dates: start: 20110510, end: 20110510
  5. PREVISCAN [Concomitant]
     Dosage: UNK
     Route: 048
     Dates: start: 20090101
  6. TRIVASTAL [Concomitant]
     Dosage: 1 DF, 2X/DAY
  7. MESNA [Suspect]
     Indication: B-CELL LYMPHOMA
     Dosage: UNK
     Route: 042
     Dates: start: 20110510, end: 20110510
  8. ESOMEPRAZOLE [Concomitant]
     Dosage: 1 DF, 1X/DAY
  9. IFOSFAMIDE [Suspect]
     Dosage: UNK
     Route: 042
     Dates: start: 20110530, end: 20110530
  10. MESNA [Suspect]
     Dosage: UNK
     Dates: start: 20110530, end: 20110530
  11. MACROGOL [Concomitant]
     Dosage: 5.9 G, UNK
  12. ECONAZOLE [Concomitant]
     Dosage: 1 DF, 3X/DAY
  13. NEULASTA [Concomitant]
     Dosage: UNK
     Dates: start: 20110512
  14. SOLU-MEDROL [Suspect]
     Indication: PREMEDICATION
     Dosage: UNK
     Route: 042
     Dates: start: 20110510, end: 20110510
  15. POLARAMINE [Suspect]
     Dosage: UNK
     Route: 042
     Dates: start: 20110530, end: 20110530
  16. PRIMPERAN TAB [Suspect]
     Dosage: UNK
     Route: 042
     Dates: start: 20110530, end: 20110530
  17. PRIMPERAN TAB [Suspect]
     Indication: PREMEDICATION
     Dosage: UNK
     Route: 042
     Dates: start: 20110510, end: 20110510
  18. BROMAZEPAM [Concomitant]
     Dosage: 6 MG, 1X/DAY
  19. FUROSEMIDE [Concomitant]
     Dosage: UNK
  20. GAVISCON [Concomitant]
     Dosage: 1 DF, 3X/DAY
  21. GRANISETRON [Concomitant]
     Dosage: UNK
     Dates: start: 20110530, end: 20110530
  22. IFOSFAMIDE [Suspect]
     Indication: B-CELL LYMPHOMA
     Dosage: UNK
     Route: 042
     Dates: start: 20110510, end: 20110510
  23. CITALOPRAM [Concomitant]
     Dosage: 20 MG, 1X/DAY
  24. VEPESID [Suspect]
     Dosage: UNK
     Route: 042
     Dates: start: 20110530, end: 20110530
  25. BISOPROLOL [Concomitant]
     Dosage: 10 MG, 1X/DAY
  26. SOLU-MEDROL [Suspect]
     Dosage: UNK
     Dates: start: 20110530, end: 20110530
  27. ALLOPURINOL [Concomitant]
     Dosage: 100 MG, 1X/DAY
  28. GRANISETRON [Concomitant]
     Dosage: UNK
     Dates: start: 20110510, end: 20110510

REACTIONS (2)
  - PURPURA [None]
  - VASCULITIS [None]
